FAERS Safety Report 5373779-2 (Version None)
Quarter: 2007Q2

REPORT INFORMATION
  Report Type: 
  Country: None (occurrence: None)
  Receive Date: 20070628
  Receipt Date: 20070621
  Transmission Date: 20071010
  Serious: Yes (Hospitalization)
  Sender: FDA-Public Use
  Company Number: US-ELI_LILLY_AND_COMPANY-US200706004922

PATIENT
  Age: 83 Year
  Sex: Female

DRUGS (10)
  1. BYETTA [Suspect]
     Indication: DIABETES MELLITUS NON-INSULIN-DEPENDENT
     Dosage: 10 UG, 2/D
     Route: 058
     Dates: start: 20060101, end: 20070227
  2. BYETTA [Suspect]
     Dosage: 10 UG, 2/D
     Route: 058
     Dates: start: 20070611
  3. LANTUS [Concomitant]
     Indication: DIABETES MELLITUS
     Dosage: 20 U, EACH EVENING
     Route: 058
  4. COREG [Concomitant]
     Dosage: 6.25 MG, DAILY (1/D)
     Route: 048
  5. POTASSIUM ACETATE [Concomitant]
     Dosage: 10 MEQ, DAILY (1/D)
     Route: 048
  6. LASIX [Concomitant]
     Indication: OEDEMA
     Dosage: 40 MG, DAILY (1/D)
     Route: 048
  7. COZAAR [Concomitant]
     Dosage: 50 MG, DAILY (1/D)
     Route: 048
  8. GLYBURIDE [Concomitant]
     Indication: DIABETES MELLITUS
     Dosage: 2.5 MG, DAILY (1/D)
     Route: 048
  9. ZETIA [Concomitant]
     Dosage: 10 MG, DAILY (1/D)
     Route: 048
  10. ZOCOR [Concomitant]
     Dosage: UNK MG, DAILY (1/D)
     Route: 048

REACTIONS (4)
  - BLOOD GLUCOSE DECREASED [None]
  - CARDIAC FAILURE [None]
  - NAUSEA [None]
  - PLEURAL EFFUSION [None]
